FAERS Safety Report 17203165 (Version 1)
Quarter: 2019Q4

REPORT INFORMATION
  Report Type: Spontaneous
  Country: CA (occurrence: CA)
  Receive Date: 20191226
  Receipt Date: 20191226
  Transmission Date: 20200122
  Serious: Yes (Other)
  Sender: FDA-Public Use
  Company Number: CA-TEVA-2019-CA-1156833

PATIENT
  Age: 37 Year
  Sex: Male

DRUGS (2)
  1. PREGABALIN. [Suspect]
     Active Substance: PREGABALIN
     Indication: PAIN
     Dosage: 6 DOSAGE FORMS DAILY;
     Route: 048
  2. INFLUENZA VACCINES [Concomitant]
     Active Substance: INFLUENZA VIRUS VACCINE

REACTIONS (1)
  - Hypomania [Recovered/Resolved]
